FAERS Safety Report 15760363 (Version 2)
Quarter: 2019Q1

REPORT INFORMATION
  Report Type: Spontaneous
  Country: US (occurrence: US)
  Receive Date: 20181226
  Receipt Date: 20190328
  Transmission Date: 20190417
  Serious: No
  Sender: FDA-Public Use
  Company Number: PHEH2018US054052

PATIENT
  Sex: Male

DRUGS (3)
  1. LENVATINIB [Suspect]
     Active Substance: LENVATINIB
     Indication: RENAL CANCER
     Dosage: 18 MG, QD
     Route: 048
     Dates: start: 20180822
  2. LENVATINIB [Suspect]
     Active Substance: LENVATINIB
     Indication: BONE CANCER
     Dosage: 14 MG, QD
     Route: 048
  3. AFINITOR [Suspect]
     Active Substance: EVEROLIMUS
     Indication: RENAL CANCER
     Dosage: 5 MG, QD
     Route: 048

REACTIONS (3)
  - Nasopharyngitis [Unknown]
  - Nausea [Recovering/Resolving]
  - Diarrhoea [Recovered/Resolved]
